FAERS Safety Report 8482002-1 (Version None)
Quarter: 2012Q3

REPORT INFORMATION
  Report Type: 
  Country: None (occurrence: None)
  Receive Date: 20120702
  Receipt Date: 20120626
  Transmission Date: 20120928
  Serious: Yes (Other)
  Sender: FDA-Public Use
  Company Number: PHEH2011US04815

PATIENT
  Sex: Female
  Weight: 55 kg

DRUGS (2)
  1. CLONAZEPAM [Concomitant]
     Indication: ANXIETY
     Dosage: 0.5 MG (1-2 QHS)
     Route: 048
     Dates: start: 20090119
  2. GILENYA [Suspect]
     Indication: MULTIPLE SCLEROSIS
     Dosage: 0.5 MG, DAILY
     Route: 048
     Dates: start: 20110901, end: 20120319

REACTIONS (4)
  - BLOOD DISORDER [None]
  - LYMPHOCYTE COUNT DECREASED [None]
  - ORAL HERPES [None]
  - NEUTROPENIA [None]
